FAERS Safety Report 5648881-8 (Version None)
Quarter: 2008Q1

REPORT INFORMATION
  Report Type: 
  Country: None (occurrence: None)
  Receive Date: 20080229
  Receipt Date: 20080225
  Transmission Date: 20080703
  Serious: Yes (Other)
  Sender: FDA-Public Use
  Company Number: 18436

PATIENT
  Age: 75 Year
  Sex: Male

DRUGS (5)
  1. METHOTREXATE [Suspect]
     Indication: MYASTHENIA GRAVIS
     Dosage: 17.5 MG WEEKLY
  2. METHOTREXATE [Suspect]
     Indication: MYASTHENIA GRAVIS
     Dosage: 25 MG WEEKLY
  3. IMMUNE GLOBULIN INTRAVENOUS (HUMAN) [Concomitant]
  4. PREDNISOLONE [Concomitant]
  5. PYRIDOSTIGMINE BROMIDE [Concomitant]

REACTIONS (5)
  - HAEMOGLOBIN DECREASED [None]
  - LYMPHOCYTE COUNT INCREASED [None]
  - MANTLE CELL LYMPHOMA [None]
  - PLATELET COUNT DECREASED [None]
  - WHITE BLOOD CELL COUNT INCREASED [None]
